FAERS Safety Report 10170476 (Version 1)
Quarter: 2014Q2

REPORT INFORMATION
  Report Type: Spontaneous
  Country: AT (occurrence: AT)
  Receive Date: 20140513
  Receipt Date: 20140513
  Transmission Date: 20141212
  Serious: Yes (Hospitalization)
  Sender: FDA-Public Use
  Company Number: AT-ACORDA-ACO_103408_2014

PATIENT
  Sex: Male

DRUGS (2)
  1. FAMPYRA [Suspect]
     Indication: MULTIPLE SCLEROSIS
     Dosage: 10 MG, TID
     Route: 048
  2. GILENYA [Concomitant]
     Indication: MULTIPLE SCLEROSIS

REACTIONS (5)
  - Motor dysfunction [Unknown]
  - Pneumonia aspiration [Unknown]
  - Respiratory tract infection [Unknown]
  - Cough decreased [Unknown]
  - Prescribed overdose [Unknown]
